FAERS Safety Report 4440489-5 (Version None)
Quarter: 2004Q3

REPORT INFORMATION
  Report Type: 
  Country: None (occurrence: None)
  Receive Date: 20040901
  Receipt Date: 20040901
  Transmission Date: 20050211
  Serious: Yes (Death)
  Sender: FDA-Public Use
  Company Number: None

PATIENT
  Age: 15 Year
  Sex: Male
  Weight: 61.2356 kg

DRUGS (1)
  1. ZOLOFT [Suspect]
     Indication: DEPRESSION
     Dosage: 25 MG/DAY ORAL X 7 DAYS, 50 MG /DAY /ORAL
     Route: 048
     Dates: start: 20031103, end: 20031114

REACTIONS (5)
  - ANXIETY [None]
  - COMPLETED SUICIDE [None]
  - DRUG INEFFECTIVE [None]
  - GUN SHOT WOUND [None]
  - RESTLESSNESS [None]
